FAERS Safety Report 6392007-2 (Version None)
Quarter: 2009Q4

REPORT INFORMATION
  Report Type: 
  Country: None (occurrence: None)
  Receive Date: 20091007
  Receipt Date: 20091001
  Transmission Date: 20100525
  Serious: Yes (Hospitalization, Other)
  Sender: FDA-Public Use
  Company Number: US-BAYER-200915066BCC

PATIENT
  Age: 89 Year
  Sex: Female

DRUGS (2)
  1. ASPIRIN [Suspect]
     Route: 048
     Dates: end: 20090901
  2. PLAVIX [Suspect]
     Indication: STENT PLACEMENT
     Dosage: TOTAL DAILY DOSE: 75 MG  UNIT DOSE: 75 MG
     Route: 048
     Dates: start: 20090701

REACTIONS (3)
  - EPISTAXIS [None]
  - EYE HAEMORRHAGE [None]
  - HAEMOPTYSIS [None]
